FAERS Safety Report 4845804-6 (Version None)
Quarter: 2005Q4

REPORT INFORMATION
  Report Type: 
  Country: None (occurrence: None)
  Receive Date: 20051202
  Receipt Date: 20051202
  Transmission Date: 20060501
  Serious: Yes (Other)
  Sender: FDA-Public Use
  Company Number: None

PATIENT
  Age: 50 Year
  Sex: Female
  Weight: 70.3075 kg

DRUGS (2)
  1. TOPAMAX [Suspect]
     Indication: MIGRAINE PROPHYLAXIS
     Dosage: 25 MG   Q A.M.   PO;  50 MG  Q P.M.  PO
     Route: 048
     Dates: start: 20051010, end: 20051014
  2. TOPAMAX [Suspect]
     Indication: MIGRAINE PROPHYLAXIS
     Dosage: 25 MG   Q A.M.   PO;  50 MG  Q P.M.  PO
     Route: 048
     Dates: start: 20051010, end: 20051014

REACTIONS (3)
  - EYE PAIN [None]
  - INTRAOCULAR PRESSURE INCREASED [None]
  - VISION BLURRED [None]
